FAERS Safety Report 4845851-4 (Version None)
Quarter: 2005Q4

REPORT INFORMATION
  Report Type: 
  Country: None (occurrence: None)
  Receive Date: 20051206
  Receipt Date: 20051201
  Transmission Date: 20060501
  Serious: Yes (Death)
  Sender: FDA-Public Use
  Company Number: JP-JPN-A20052942

PATIENT
  Age: 40 Year
  Sex: Female

DRUGS (7)
  1. PAXIL [Suspect]
     Indication: DEPRESSION
     Dosage: 20MG PER DAY
     Route: 048
  2. DEPAKENE [Concomitant]
     Route: 048
  3. U PAN [Concomitant]
     Route: 048
  4. UNKNOWN DRUG [Concomitant]
     Route: 065
  5. ESTAZOLAM [Concomitant]
     Route: 048
  6. EVAMYL [Concomitant]
     Route: 048
  7. NITRAZEPAM [Concomitant]
     Route: 048

REACTIONS (3)
  - CSF TEST ABNORMAL [None]
  - DEATH [None]
  - EPISTAXIS [None]
